FAERS Safety Report 15374785 (Version 1)
Quarter: 2018Q3

REPORT INFORMATION
  Report Type: Spontaneous
  Country: US (occurrence: US)
  Receive Date: 20180906
  Receipt Date: 20180906
  Transmission Date: 20181010
  Serious: Yes (Other)
  Sender: FDA-Public Use
  Company Number: None

PATIENT
  Age: 42 Year
  Sex: Male

DRUGS (1)
  1. LITHIUM CARBONATE. [Suspect]
     Active Substance: LITHIUM CARBONATE
     Dates: start: 20180622, end: 20180904

REACTIONS (4)
  - Mania [None]
  - Product odour abnormal [None]
  - Product colour issue [None]
  - Product physical consistency issue [None]

NARRATIVE: CASE EVENT DATE: 20180904
